FAERS Safety Report 9934877 (Version 5)
Quarter: 2014Q1

REPORT INFORMATION
  Report Type: Spontaneous
  Country: GB (occurrence: GB)
  Receive Date: 20140228
  Receipt Date: 20140318
  Transmission Date: 20141002
  Serious: Yes (Other)
  Sender: FDA-Public Use
  Company Number: PHFR2014GB001052

PATIENT
  Age: 47 Year
  Sex: Male

DRUGS (2)
  1. CLOZARIL [Suspect]
     Indication: SCHIZOPHRENIA
     Dosage: UNK
     Route: 048
     Dates: start: 20120617
  2. CLOZARIL [Suspect]
     Dosage: UNK
     Route: 048
     Dates: end: 20140302

REACTIONS (15)
  - C-reactive protein increased [Unknown]
  - Vitamin D decreased [Unknown]
  - Hairy cell leukaemia [Unknown]
  - Red blood cell sedimentation rate increased [Unknown]
  - Haemoglobin decreased [Not Recovered/Not Resolved]
  - Blood alkaline phosphatase increased [Unknown]
  - Malaise [Unknown]
  - Blood urea decreased [Unknown]
  - Blood albumin decreased [Unknown]
  - Red blood cell count decreased [Unknown]
  - Mean cell volume decreased [Unknown]
  - Platelet count increased [Not Recovered/Not Resolved]
  - White blood cell count increased [Not Recovered/Not Resolved]
  - Neutrophil count increased [Not Recovered/Not Resolved]
  - Alanine aminotransferase increased [Unknown]
